FAERS Safety Report 6996530-9 (Version None)
Quarter: 2010Q3

REPORT INFORMATION
  Report Type: 
  Country: None (occurrence: None)
  Receive Date: 20100918
  Receipt Date: 20090422
  Transmission Date: 20110219
  Serious: No
  Sender: FDA-Public Use
  Company Number: US-WYE-H09056909

PATIENT
  Age: 55 Year
  Sex: Female

DRUGS (6)
  1. EFFEXOR XR [Suspect]
     Indication: DEPRESSION
     Route: 048
     Dates: start: 20060101, end: 20090413
  2. EFFEXOR XR [Suspect]
     Dosage: ^TOOK A DOSE^
     Route: 048
     Dates: start: 20090421
  3. ESTROGEN NOS [Concomitant]
  4. PROPRANOLOL [Concomitant]
  5. PREVACID [Concomitant]
  6. MAXALT [Concomitant]

REACTIONS (19)
  - CHILLS [None]
  - DECREASED APPETITE [None]
  - DIZZINESS [None]
  - DRUG WITHDRAWAL SYNDROME [None]
  - HEADACHE [None]
  - HYPERHIDROSIS [None]
  - INCREASED APPETITE [None]
  - IRRITABILITY [None]
  - MEMORY IMPAIRMENT [None]
  - NAUSEA [None]
  - ORAL DISCOMFORT [None]
  - PHARYNGEAL OEDEMA [None]
  - PRURITUS [None]
  - RASH MACULAR [None]
  - SKIN BURNING SENSATION [None]
  - THIRST [None]
  - THROAT TIGHTNESS [None]
  - UNEVALUABLE EVENT [None]
  - WEIGHT INCREASED [None]
